FAERS Safety Report 4268576-5 (Version None)
Quarter: 2004Q1

REPORT INFORMATION
  Report Type: 
  Country: None (occurrence: None)
  Receive Date: 20040108
  Receipt Date: 20031223
  Transmission Date: 20041129
  Serious: Yes (Death)
  Sender: FDA-Public Use
  Company Number: 2003SE05852

PATIENT
  Age: 76 Year
  Sex: Male

DRUGS (8)
  1. SEROQUEL [Suspect]
     Indication: DEMENTIA
     Dosage: 25 MG DAILY PO
     Route: 048
     Dates: start: 20031203, end: 20031205
  2. RYTMONORM [Suspect]
     Indication: ARRHYTHMIA
  3. AMARYL [Concomitant]
  4. TEBOKAN [Concomitant]
  5. MONODUR [Concomitant]
  6. HYZAAR [Concomitant]
  7. DILTIAZEM [Concomitant]
  8. DIGOXIN [Concomitant]

REACTIONS (1)
  - ARRHYTHMIA [None]
